FAERS Safety Report 21347318 (Version 2)
Quarter: 2022Q4

REPORT INFORMATION
  Report Type: Spontaneous
  Country: US (occurrence: US)
  Receive Date: 20220919
  Receipt Date: 20221014
  Transmission Date: 20230113
  Serious: Yes (Other)
  Sender: FDA-Public Use
  Company Number: US-GSK-US2022AMR131256

PATIENT
  Age: 61 Year
  Sex: Female

DRUGS (3)
  1. TRELEGY ELLIPTA [Suspect]
     Active Substance: FLUTICASONE FUROATE\UMECLIDINIUM BROMIDE\VILANTEROL TRIFENATATE
     Indication: Chronic obstructive pulmonary disease
     Dosage: UNK
  2. TRELEGY ELLIPTA [Suspect]
     Active Substance: FLUTICASONE FUROATE\UMECLIDINIUM BROMIDE\VILANTEROL TRIFENATATE
     Indication: Asthma
  3. PREDNISONE [Suspect]
     Active Substance: PREDNISONE
     Indication: Productive cough
     Dosage: UNK

REACTIONS (15)
  - Pneumonia [Unknown]
  - Dyspnoea [Unknown]
  - Tremor [Unknown]
  - Flatulence [Unknown]
  - Cough [Unknown]
  - Coronavirus infection [Unknown]
  - Stress [Unknown]
  - Anxiety [Unknown]
  - Pain [Unknown]
  - Wheezing [Unknown]
  - Productive cough [Unknown]
  - Crying [Unknown]
  - Mood altered [Unknown]
  - Drug effective for unapproved indication [Unknown]
  - Product dose omission issue [Unknown]
